FAERS Safety Report 9190886 (Version 4)
Quarter: 2013Q2

REPORT INFORMATION
  Report Type: Report from Study
  Country: US (occurrence: US)
  Receive Date: 20130326
  Receipt Date: 20130607
  Transmission Date: 20140414
  Serious: Yes (Hospitalization)
  Sender: FDA-Public Use
  Company Number: US-ROCHE-1205335

PATIENT
  Age: 64 Year
  Sex: Male

DRUGS (30)
  1. VEMURAFENIB [Suspect]
     Indication: PAPILLARY THYROID CANCER
     Route: 048
     Dates: start: 20120830, end: 20121223
  2. VEMURAFENIB [Suspect]
     Route: 048
     Dates: start: 20121224, end: 20130104
  3. VEMURAFENIB [Suspect]
     Route: 048
     Dates: start: 20130104, end: 20130110
  4. VEMURAFENIB [Suspect]
     Route: 048
     Dates: start: 20130118, end: 20130123
  5. VEMURAFENIB [Suspect]
     Route: 048
     Dates: start: 20130123, end: 20130126
  6. VEMURAFENIB [Suspect]
     Route: 048
     Dates: start: 20130127, end: 20130214
  7. VEMURAFENIB [Suspect]
     Route: 048
     Dates: start: 20130227, end: 20130304
  8. VEMURAFENIB [Suspect]
     Route: 048
     Dates: start: 20130305
  9. ACETAMINOPHEN [Concomitant]
     Route: 048
     Dates: start: 20120202
  10. CALCITRIOL [Concomitant]
     Route: 048
     Dates: start: 20120202
  11. CALCIUM CARBONATE [Concomitant]
     Route: 048
     Dates: start: 20120202
  12. LEVOTHYROXINE SODIUM [Concomitant]
     Route: 048
     Dates: start: 20050802
  13. RAMIPRIL [Concomitant]
     Indication: HYPERTENSION
     Route: 048
     Dates: start: 20070802
  14. ZOLPIDEM [Concomitant]
     Indication: INSOMNIA
     Dosage: AT BEDTIME
     Route: 048
     Dates: start: 20120102
  15. ALOE VERA GEL [Concomitant]
     Indication: SUNBURN
     Route: 061
     Dates: start: 20120916, end: 20121119
  16. OXYCODONE/ACETAMINOPHEN [Concomitant]
     Dosage: 10- 325 MG EVERY 6 HOUR
     Route: 048
     Dates: start: 20121111
  17. OXYCODONE/ACETAMINOPHEN [Concomitant]
     Dosage: 10- 325 MG EVERY 6 HOUR
     Route: 048
     Dates: start: 20121217
  18. CIPROFLOXACIN [Concomitant]
     Indication: ABDOMINAL PAIN LOWER
     Route: 048
     Dates: start: 20121114
  19. FLAGYL [Concomitant]
     Indication: ABDOMINAL PAIN LOWER
     Dosage: EVERY 6 HOUR
     Route: 048
     Dates: start: 20121114
  20. OXYCODONE HCL [Concomitant]
     Dosage: EVERY 12 HOUR
     Route: 048
     Dates: start: 20130117
  21. UROXATRAL [Concomitant]
     Indication: BENIGN PROSTATIC HYPERPLASIA
     Route: 048
     Dates: start: 20080802
  22. ASPIRIN [Concomitant]
     Indication: CORONARY ARTERY DISEASE
     Route: 048
     Dates: start: 19980802
  23. ATORVASTATIN [Concomitant]
     Indication: HYPERCHOLESTEROLAEMIA
     Route: 048
     Dates: start: 20120614
  24. CLOTRIMAZOLE [Concomitant]
     Indication: INFECTION
     Route: 048
     Dates: start: 20110607
  25. COENZYME Q [Concomitant]
     Indication: CORONARY ARTERY DISEASE
     Route: 048
     Dates: start: 20070802
  26. DEXAMETHASONE [Concomitant]
     Indication: MOUTH ULCERATION
     Dosage: 0.5 MG/ML
     Route: 048
     Dates: start: 20110607
  27. ESOMEPRAZOLE MAGNESIUM [Concomitant]
     Indication: DYSPEPSIA
     Route: 048
     Dates: start: 20040802
  28. IBUPROFEN [Concomitant]
     Indication: MUSCULOSKELETAL PAIN
     Route: 048
     Dates: start: 20120202
  29. NIACIN [Concomitant]
     Indication: HYPERCHOLESTEROLAEMIA
     Dosage: 2 TABLETS DAILY
     Route: 048
     Dates: start: 20020802
  30. PREDNISONE [Concomitant]
     Indication: BACK PAIN
     Dosage: TAPERING DOSE
     Route: 048
     Dates: start: 20130205

REACTIONS (1)
  - Diverticulitis [Not Recovered/Not Resolved]
